FAERS Safety Report 5853875-3 (Version None)
Quarter: 2008Q3

REPORT INFORMATION
  Report Type: 
  Country: None (occurrence: None)
  Receive Date: 20080822
  Receipt Date: 20080820
  Transmission Date: 20090109
  Serious: Yes (Death, Hospitalization)
  Sender: FDA-Public Use
  Company Number: A0713324A

PATIENT
  Age: 74 Year
  Sex: Male
  Weight: 113.6 kg

DRUGS (5)
  1. AVANDIA [Suspect]
     Route: 048
     Dates: start: 20020506, end: 20060218
  2. HUMALOG [Concomitant]
     Dates: start: 20021001, end: 20060218
  3. NIASPAN [Concomitant]
  4. GLUCOPHAGE [Concomitant]
  5. INSULIN [Concomitant]

REACTIONS (5)
  - ACUTE MYOCARDIAL INFARCTION [None]
  - ANXIETY [None]
  - DEATH [None]
  - FLUID RETENTION [None]
  - RENAL FAILURE [None]
